FAERS Safety Report 4518417-3 (Version None)
Quarter: 2004Q4

REPORT INFORMATION
  Report Type: 
  Country: None (occurrence: None)
  Receive Date: 20041202
  Receipt Date: 20041119
  Transmission Date: 20050328
  Serious: Yes (Life-Threatening, Hospitalization)
  Sender: FDA-Public Use
  Company Number: HQWYE624522NOV04

PATIENT
  Age: 78 Year
  Sex: Male

DRUGS (6)
  1. CORDARONE [Suspect]
     Dosage: 200 MG 5X PER 1 WK
     Route: 048
     Dates: end: 20040828
  2. TADENAN   (PYGEUM AFRICANUM) [Concomitant]
  3. RAMIPRIL [Concomitant]
  4. ASPIRIN [Concomitant]
  5. PREVISCAN        (FLUINDIONE) [Concomitant]
  6. IZILOX         (MOXIFLOXACIN,) [Suspect]
     Indication: LUNG DISORDER
     Route: 048
     Dates: start: 20040823, end: 20040828

REACTIONS (7)
  - ACUTE PULMONARY OEDEMA [None]
  - CARDIAC DISORDER [None]
  - DRUG INTERACTION [None]
  - HAEMOPTYSIS [None]
  - HYPOTHYROIDISM [None]
  - RENAL FAILURE [None]
  - TORSADE DE POINTES [None]
